FAERS Safety Report 15255301 (Version 12)
Quarter: 2021Q3

REPORT INFORMATION
  Report Type: Spontaneous
  Country: US (occurrence: US)
  Receive Date: 20180808
  Receipt Date: 20210713
  Transmission Date: 20211014
  Serious: Yes (Hospitalization, Other)
  Sender: FDA-Public Use
  Company Number: US-PFIZER INC-2018303333

PATIENT
  Age: 63 Year
  Sex: Female
  Weight: 64 kg

DRUGS (8)
  1. LYRICA [Suspect]
     Active Substance: PREGABALIN
     Indication: FIBROMYALGIA
     Dosage: 150 MG, 2X/DAY
     Route: 048
  2. NORCO [Concomitant]
     Active Substance: ACETAMINOPHEN\HYDROCODONE BITARTRATE
     Dosage: UNK
     Dates: start: 2006
  3. MS CONTIN [Concomitant]
     Active Substance: MORPHINE SULFATE
     Dosage: UNK
  4. LYRICA [Suspect]
     Active Substance: PREGABALIN
     Indication: NEUROPATHY PERIPHERAL
     Dosage: 150 MG, 1X/DAY
     Route: 048
     Dates: start: 2007
  5. MORPHINE [Concomitant]
     Active Substance: MORPHINE
     Dosage: UNK
     Dates: start: 2006
  6. LYRICA [Suspect]
     Active Substance: PREGABALIN
     Indication: NEURALGIA
     Dosage: 150 MG, 2X/DAY
     Route: 048
     Dates: start: 2006
  7. LYRICA [Suspect]
     Active Substance: PREGABALIN
     Dosage: 150 MG, 2X/DAY
     Route: 048
     Dates: end: 20180725
  8. LYRICA [Suspect]
     Active Substance: PREGABALIN
     Dosage: 150 MG, 2X/DAY
     Route: 048

REACTIONS (17)
  - Vomiting [Recovered/Resolved]
  - Cerebral disorder [Unknown]
  - Diarrhoea [Unknown]
  - Off label use [Unknown]
  - Hyperhidrosis [Unknown]
  - Pyrexia [Unknown]
  - Illness [Recovered/Resolved]
  - Asthenia [Unknown]
  - Intestinal perforation [Unknown]
  - Loss of consciousness [Recovered/Resolved]
  - Pharyngeal disorder [Unknown]
  - Product use issue [Unknown]
  - Frustration tolerance decreased [Recovered/Resolved]
  - Headache [Recovered/Resolved]
  - Panic reaction [Unknown]
  - Seizure [Recovered/Resolved]
  - Intentional product use issue [Unknown]

NARRATIVE: CASE EVENT DATE: 20180704
